FAERS Safety Report 24848553 (Version 1)
Quarter: 2025Q1

REPORT INFORMATION
  Report Type: Spontaneous
  Country: US (occurrence: US)
  Receive Date: 20250116
  Receipt Date: 20250116
  Transmission Date: 20250409
  Serious: Yes (Other)
  Sender: RECORDATI
  Company Number: US-RECORDATI RARE DISEASE INC.-2025000065

PATIENT

DRUGS (12)
  1. CYSTADANE [Suspect]
     Active Substance: BETAINE
     Indication: Methylmalonic acidaemia
     Dosage: 3 GRAM, TID, ORAL POWDER
     Route: 048
  2. CYSTADANE [Suspect]
     Active Substance: BETAINE
     Indication: Homocystinuria
     Dosage: 2.5 GRAM, BID
     Route: 048
     Dates: start: 20190404
  3. CARNITOR [Concomitant]
     Active Substance: LEVOCARNITINE
     Indication: Product used for unknown indication
     Dosage: 5 MILLILITER, QD
     Route: 048
     Dates: start: 20180629
  4. DIVALPROEX SODIUM [Concomitant]
     Active Substance: DIVALPROEX SODIUM
     Indication: Product used for unknown indication
     Dosage: 375 MG, BID
     Route: 048
     Dates: start: 20160401
  5. ETHOSUXIMIDE [Concomitant]
     Active Substance: ETHOSUXIMIDE
     Indication: Product used for unknown indication
     Dosage: 1250 MG, BID (CAPSULE 250 MG)
     Route: 048
     Dates: start: 20240415
  6. FLONASE ALLERGY RELIEF [Concomitant]
     Active Substance: FLUTICASONE PROPIONATE
     Indication: Product used for unknown indication
     Dosage: 2 DOSAGE FORM, QD, 2 SPRAYS EN (NASAL SUSPENSION)
     Route: 045
     Dates: start: 20231201
  7. GUANFACINE HYDROCHLORIDE [Concomitant]
     Active Substance: GUANFACINE HYDROCHLORIDE
     Indication: Product used for unknown indication
     Dosage: 1 MG, BID
     Route: 048
     Dates: start: 20180111
  8. HYDROXOCOBALAMIN ACETATE [Concomitant]
     Active Substance: HYDROXOCOBALAMIN ACETATE
     Indication: Product used for unknown indication
     Dosage: 1 MILLILITER, QD
     Route: 030
     Dates: start: 20230714
  9. MELATONIN [Concomitant]
     Active Substance: MELATONIN
     Indication: Product used for unknown indication
     Dosage: 1 MG, QD, AT BEDTIME (MELATONIN TR ORAL TABLET EXTENDED RELEASE)
     Route: 048
     Dates: start: 20240213
  10. VITAMINS [Concomitant]
     Active Substance: VITAMINS
     Indication: Product used for unknown indication
     Dosage: 1 DOSAGE FORM, QOD (1 TABLET), GUMMIES CHILDRENS
     Route: 048
     Dates: start: 20170501
  11. VYVANSE [Concomitant]
     Active Substance: LISDEXAMFETAMINE DIMESYLATE
     Indication: Product used for unknown indication
     Route: 048
     Dates: start: 20230801
  12. ZYRTEC [Concomitant]
     Active Substance: CETIRIZINE HYDROCHLORIDE
     Indication: Product used for unknown indication
     Dosage: 10 MG, QD (CAPSULE 10 MG)
     Route: 048
     Dates: start: 20231201

REACTIONS (1)
  - Epilepsy [Recovered/Resolved]

NARRATIVE: CASE EVENT DATE: 20250104
